FAERS Safety Report 5087453-3 (Version None)
Quarter: 2006Q3

REPORT INFORMATION
  Report Type: 
  Country: None (occurrence: None)
  Receive Date: 20060822
  Receipt Date: 20060822
  Transmission Date: 20061208
  Serious: Yes (Other)
  Sender: FDA-Public Use
  Company Number: None

PATIENT
  Age: 38 Year
  Sex: Male

DRUGS (1)
  1. ZONISAMIDE [Suspect]
     Indication: CONVULSION
     Dosage: 100 MGS  TWO BID  PO
     Route: 048
     Dates: start: 20060703

REACTIONS (7)
  - CONVULSION [None]
  - DYSARTHRIA [None]
  - EYE IRRITATION [None]
  - EYE PAIN [None]
  - FATIGUE [None]
  - HEADACHE [None]
  - PHARMACEUTICAL PRODUCT COMPLAINT [None]
